FAERS Safety Report 8793220 (Version 7)
Quarter: 2016Q1

REPORT INFORMATION
  Report Type: Spontaneous
  Country: GB (occurrence: GB)
  Receive Date: 20120918
  Receipt Date: 20160316
  Transmission Date: 20160526
  Serious: Yes (Other)
  Sender: FDA-Public Use
  Company Number: GB-BRISTOL-MYERS SQUIBB COMPANY-16916363

PATIENT
  Age: 52 Year
  Sex: Female
  Weight: 48 kg

DRUGS (4)
  1. ADCORTYL [Suspect]
     Active Substance: TRIAMCINOLONE ACETONIDE
     Indication: EPIDURAL ANALGESIA
     Dosage: 1 ML, UNK
     Route: 051
     Dates: start: 20120530, end: 20120530
  2. CHIROCAINE [Suspect]
     Active Substance: LEVOBUPIVACAINE HYDROCHLORIDE
     Indication: EPIDURAL ANALGESIA
     Route: 051
     Dates: start: 20120530, end: 20120530
  3. SOLPADEINE [Concomitant]
     Indication: PRODUCT USED FOR UNKNOWN INDICATION
     Dosage: UNK
     Route: 065
  4. PARACETAMOL [Concomitant]
     Active Substance: ACETAMINOPHEN
     Indication: PRODUCT USED FOR UNKNOWN INDICATION
     Route: 065

REACTIONS (11)
  - Hypertension [Not Recovered/Not Resolved]
  - Anxiety [Not Recovered/Not Resolved]
  - Insomnia [Not Recovered/Not Resolved]
  - Arachnoiditis [Not Recovered/Not Resolved]
  - Abdominal pain upper [Recovered/Resolved]
  - Pruritus generalised [Not Recovered/Not Resolved]
  - Dizziness [Not Recovered/Not Resolved]
  - Product use issue [Unknown]
  - Vision blurred [Not Recovered/Not Resolved]
  - Hypersensitivity [Not Recovered/Not Resolved]
  - Cauda equina syndrome [Not Recovered/Not Resolved]

NARRATIVE: CASE EVENT DATE: 2012
